FAERS Safety Report 24699363 (Version 1)
Quarter: 2024Q4

REPORT INFORMATION
  Report Type: Spontaneous
  Country: AT (occurrence: AT)
  Receive Date: 20241205
  Receipt Date: 20241205
  Transmission Date: 20250115
  Serious: Yes (Hospitalization, Other)
  Sender: JOHNSON AND JOHNSON
  Company Number: AT-JNJFOC-20240751708

PATIENT
  Age: 37 Year
  Sex: Female

DRUGS (135)
  1. LOPERAMIDE HYDROCHLORIDE [Suspect]
     Active Substance: LOPERAMIDE HYDROCHLORIDE
     Indication: Diarrhoea
     Dates: start: 20171106, end: 20171127
  2. LOPERAMIDE HYDROCHLORIDE [Suspect]
     Active Substance: LOPERAMIDE HYDROCHLORIDE
     Dates: start: 20171127
  3. TUKYSA [Suspect]
     Active Substance: TUCATINIB
     Indication: HER2 positive breast cancer
     Dates: start: 20210929, end: 20221023
  4. TUKYSA [Suspect]
     Active Substance: TUCATINIB
     Indication: Breast cancer metastatic
     Dates: start: 20210430, end: 20210927
  5. TUKYSA [Suspect]
     Active Substance: TUCATINIB
     Dates: start: 20210430
  6. TAXOTERE [Suspect]
     Active Substance: DOCETAXEL
     Indication: HER2 positive breast cancer
     Dates: start: 20161020, end: 20161020
  7. TAXOTERE [Suspect]
     Active Substance: DOCETAXEL
     Indication: Breast cancer metastatic
     Dosage: 100 MG/M2, Q3WEEKS FREQUENCY: 1 FREQUENCY TIME: 3 FREQUENCY TIME UNIT: WEEKS
     Dates: start: 20161201, end: 20170202
  8. TAXOTERE [Suspect]
     Active Substance: DOCETAXEL
     Dosage: 75 MG/M2, Q3WEEKS FREQUENCY: 1 FREQUENCY TIME: 3 FREQUENCY TIME UNIT: WEEKS
     Dates: start: 20161111, end: 20161111
  9. KADCYLA [Suspect]
     Active Substance: ADO-TRASTUZUMAB EMTANSINE
     Indication: HER2 positive breast cancer
     Dosage: 216 MG FREQUENCY: 1 FREQUENCY TIME: 3 FREQUENCY TIME UNIT: WEEKS
     Dates: start: 20180205, end: 20190816
  10. KADCYLA [Suspect]
     Active Substance: ADO-TRASTUZUMAB EMTANSINE
     Indication: Breast cancer metastatic
     Route: 065
  11. XELODA [Suspect]
     Active Substance: CAPECITABINE
     Indication: HER2 positive breast cancer
     Dates: start: 20220204, end: 20220930
  12. XELODA [Suspect]
     Active Substance: CAPECITABINE
     Dates: start: 20210430, end: 20210903
  13. XELODA [Suspect]
     Active Substance: CAPECITABINE
     Dates: start: 20210904, end: 20210927
  14. XELODA [Suspect]
     Active Substance: CAPECITABINE
     Dates: start: 20210929, end: 20220114
  15. XELODA [Suspect]
     Active Substance: CAPECITABINE
     Dates: start: 20220930, end: 20221024
  16. TRASTUZUMAB DERUXTECAN [Suspect]
     Active Substance: TRASTUZUMAB DERUXTECAN
     Indication: HER2 positive breast cancer
     Dosage: 5.4 MG/KG, Q3WEEKS FREQUENCY: 1 FREQUENCY TIME: 3 FREQUENCY TIME UNIT: WEEKS
     Dates: start: 20220924, end: 20221114
  17. TRASTUZUMAB DERUXTECAN [Suspect]
     Active Substance: TRASTUZUMAB DERUXTECAN
     Dates: start: 20221202, end: 20230714
  18. TRASTUZUMAB DERUXTECAN [Suspect]
     Active Substance: TRASTUZUMAB DERUXTECAN
     Dates: start: 20230811
  19. ELLENCE [Suspect]
     Active Substance: EPIRUBICIN HYDROCHLORIDE
     Indication: HER2 positive breast cancer
     Dates: start: 20161005, end: 20161005
  20. ELLENCE [Suspect]
     Active Substance: EPIRUBICIN HYDROCHLORIDE
     Indication: Breast cancer metastatic
  21. PERJETA [Suspect]
     Active Substance: PERTUZUMAB
     Indication: HER2 positive breast cancer
     Dates: start: 20170202, end: 20180108
  22. PERJETA [Suspect]
     Active Substance: PERTUZUMAB
     Dates: start: 20161020, end: 20161020
  23. PERJETA [Suspect]
     Active Substance: PERTUZUMAB
     Dates: start: 20190906, end: 20210409
  24. PERJETA [Suspect]
     Active Substance: PERTUZUMAB
     Dates: start: 20170112, end: 20170112
  25. HERCEPTIN [Suspect]
     Active Substance: TRASTUZUMAB
     Indication: HER2 positive breast cancer
     Dates: start: 20210929, end: 20220930
  26. HERCEPTIN [Suspect]
     Active Substance: TRASTUZUMAB
     Indication: Breast cancer metastatic
     Dates: start: 20190906, end: 20210927
  27. HERCEPTIN [Suspect]
     Active Substance: TRASTUZUMAB
     Dates: start: 20170112, end: 20170112
  28. HERCEPTIN [Suspect]
     Active Substance: TRASTUZUMAB
     Dates: start: 20170202, end: 20180108
  29. HERCEPTIN [Suspect]
     Active Substance: TRASTUZUMAB
     Dates: start: 20161020, end: 20161020
  30. CYTOXAN [Suspect]
     Active Substance: CYCLOPHOSPHAMIDE
     Indication: HER2 positive breast cancer
     Dates: start: 20161005, end: 20161005
  31. CYTOXAN [Suspect]
     Active Substance: CYCLOPHOSPHAMIDE
     Indication: Breast cancer metastatic
  32. CAPECITABINE [Suspect]
     Active Substance: CAPECITABINE
     Indication: HER2 positive breast cancer
     Dates: start: 20210430, end: 20210903
  33. CAPECITABINE [Suspect]
     Active Substance: CAPECITABINE
     Indication: Breast cancer metastatic
     Dosage: 1000 MILLIGRAM
     Dates: start: 20210904, end: 20210927
  34. CAPECITABINE [Suspect]
     Active Substance: CAPECITABINE
     Dates: start: 20210929, end: 20220114
  35. CAPECITABINE [Suspect]
     Active Substance: CAPECITABINE
     Dosage: 1- DAY 14
     Dates: start: 20220204, end: 20220930
  36. CAPECITABINE [Suspect]
     Active Substance: CAPECITABINE
     Dates: start: 20220204, end: 20220930
  37. CAPECITABINE [Suspect]
     Active Substance: CAPECITABINE
     Dates: start: 20220204, end: 20220930
  38. CAPECITABINE [Suspect]
     Active Substance: CAPECITABINE
     Dates: start: 20210404, end: 20220114
  39. CAPECITABINE [Suspect]
     Active Substance: CAPECITABINE
     Dosage: 1000 MG/ DAY 1- DAY 14
     Dates: start: 20210904, end: 20220114
  40. CYCLOPHOSPHAMIDE [Suspect]
     Active Substance: CYCLOPHOSPHAMIDE
     Indication: Breast cancer metastatic
     Dates: start: 20161005
  41. DOCETAXEL [Suspect]
     Active Substance: DOCETAXEL
     Indication: Breast cancer metastatic
     Dates: start: 20161111, end: 20161111
  42. DOCETAXEL [Suspect]
     Active Substance: DOCETAXEL
     Dates: start: 20161201, end: 20161222
  43. DOCETAXEL [Suspect]
     Active Substance: DOCETAXEL
     Dates: start: 20170112, end: 20170202
  44. DOCETAXEL [Suspect]
     Active Substance: DOCETAXEL
     Dates: start: 20161020, end: 20161020
  45. ENHERTU [Suspect]
     Active Substance: FAM-TRASTUZUMAB DERUXTECAN-NXKI
     Indication: Breast cancer metastatic
     Dates: start: 20161020, end: 20161020
  46. ENHERTU [Suspect]
     Active Substance: FAM-TRASTUZUMAB DERUXTECAN-NXKI
     Dates: start: 20170112, end: 20170112
  47. ENHERTU [Suspect]
     Active Substance: FAM-TRASTUZUMAB DERUXTECAN-NXKI
     Dates: start: 20170227, end: 20170227
  48. ENHERTU [Suspect]
     Active Substance: FAM-TRASTUZUMAB DERUXTECAN-NXKI
     Dates: start: 20190906, end: 20190906
  49. TUCATINIB [Suspect]
     Active Substance: TUCATINIB
     Indication: HER2 positive breast cancer
     Dosage: (300 MG, 2/ DAY)
     Route: 065
     Dates: start: 20210929, end: 20221023
  50. TUCATINIB [Suspect]
     Active Substance: TUCATINIB
     Route: 065
     Dates: start: 20210927
  51. PERTUZUMAB [Suspect]
     Active Substance: PERTUZUMAB
     Indication: HER2 positive breast cancer
     Dosage: ONCE EVERY 3 WK
     Dates: start: 20161020, end: 20161020
  52. PERTUZUMAB [Suspect]
     Active Substance: PERTUZUMAB
     Indication: Breast cancer metastatic
     Dosage: ONCE EVERY 3 WK
     Dates: start: 20170112, end: 20170112
  53. PERTUZUMAB [Suspect]
     Active Substance: PERTUZUMAB
     Dosage: ONCE EVERY 3 WK
     Dates: start: 20170202, end: 20180108
  54. PERTUZUMAB [Suspect]
     Active Substance: PERTUZUMAB
     Dosage: ONCE EVERY 3 WK
     Dates: start: 20170227, end: 20180108
  55. PERTUZUMAB [Suspect]
     Active Substance: PERTUZUMAB
     Dosage: ONCE EVERY 3 WK
     Dates: start: 20190906, end: 20210409
  56. SPIRONOLACTONE [Suspect]
     Active Substance: SPIRONOLACTONE
     Indication: Product used for unknown indication
     Route: 065
     Dates: start: 20230811
  57. TUCATINIB [Suspect]
     Active Substance: TUCATINIB
     Indication: HER2 positive breast cancer
     Dosage: 300 MG, TWICE A DAY
     Dates: start: 20210430, end: 20221023
  58. TUCATINIB [Suspect]
     Active Substance: TUCATINIB
     Indication: Breast cancer metastatic
     Dosage: 300 MG, MULTIPLE 1 DAYS
     Dates: start: 20210929
  59. TUCATINIB [Suspect]
     Active Substance: TUCATINIB
     Dosage: 300 MG, (0.5 DAY)
     Dates: start: 20210929
  60. ZOFRAN [Concomitant]
     Active Substance: ONDANSETRON HYDROCHLORIDE
     Indication: Prophylaxis of nausea and vomiting
     Dates: start: 20161123, end: 20170204
  61. LIPEGFILGRASTIM [Concomitant]
     Active Substance: LIPEGFILGRASTIM
     Indication: Prophylaxis
     Dosage: ONCE EVERY 3 WK
     Dates: start: 20170113, end: 20170203
  62. SERTRALINE [Concomitant]
     Active Substance: SERTRALINE HYDROCHLORIDE
     Indication: Depression
     Dates: start: 20171016
  63. SERTRALINE [Concomitant]
     Active Substance: SERTRALINE HYDROCHLORIDE
     Dates: start: 20230714
  64. XARELTO [Concomitant]
     Active Substance: RIVAROXABAN
     Indication: Product used for unknown indication
     Dates: start: 20161026, end: 201612
  65. HALCION [Concomitant]
     Active Substance: TRIAZOLAM
     Indication: Sleep disorder
     Dates: start: 2016, end: 201610
  66. BISOPROLOL FUMARATE [Concomitant]
     Active Substance: BISOPROLOL FUMARATE
     Indication: Prophylaxis
     Dates: start: 20161117, end: 20170226
  67. BISOPROLOL FUMARATE [Concomitant]
     Active Substance: BISOPROLOL FUMARATE
     Dosage: 2.5 MILLIGRAM, TWICE A DAY
     Dates: start: 20170227
  68. MOVICOL [Concomitant]
     Active Substance: POLYETHYLENE GLYCOL 3350\POTASSIUM CHLORIDE\SODIUM BICARBONATE\SODIUM CHLORIDE
     Indication: Constipation prophylaxis
     Dosage: AS NEEDED
     Dates: start: 201706
  69. RAMIPRIL [Concomitant]
     Active Substance: RAMIPRIL
     Indication: Cardiovascular event prophylaxis
     Dosage: 2.5 MILLIGRAM, TWICE A DAY
     Dates: start: 20161112, end: 20161221
  70. RAMIPRIL [Concomitant]
     Active Substance: RAMIPRIL
     Dosage: TWICE A DAY
     Dates: start: 20161222, end: 20170226
  71. RAMIPRIL [Concomitant]
     Active Substance: RAMIPRIL
     Dosage: 15 MILLIGRAM, TWICE A DAY
     Dates: start: 20170227
  72. PERFALGAN [Concomitant]
     Active Substance: ACETAMINOPHEN
     Indication: Product used for unknown indication
     Dates: start: 20161208, end: 20161212
  73. HALDOL [Concomitant]
     Active Substance: HALOPERIDOL
     Indication: Prophylaxis of nausea and vomiting
     Dosage: 4 DROP, TWICE A DAY
  74. ESOMEPRAZOLE [Concomitant]
     Active Substance: ESOMEPRAZOLE
     Indication: Product used for unknown indication
     Dosage: ONGOING = CHECKED
     Route: 065
     Dates: start: 20221123
  75. MINERALS\VITAMINS [Concomitant]
     Active Substance: MINERALS\VITAMINS
     Indication: Product used for unknown indication
     Route: 065
  76. POTASSIUM CHLORIDE [Concomitant]
     Active Substance: POTASSIUM CHLORIDE
     Indication: Prophylaxis
     Dosage: 1200 MILLIGRAM, TWICE A DAY
     Dates: start: 20161117, end: 201702
  77. MILNACIPRAN [Concomitant]
     Active Substance: MILNACIPRAN
     Indication: Product used for unknown indication
     Dosage: ONGOING = CHECKED
     Route: 065
     Dates: start: 20221123, end: 20230713
  78. ARANESP [Concomitant]
     Active Substance: DARBEPOETIN ALFA
     Indication: Anaemia prophylaxis
     Dates: start: 20161201, end: 201701
  79. ARANESP [Concomitant]
     Active Substance: DARBEPOETIN ALFA
     Dates: start: 20161201, end: 201701
  80. XGEVA [Concomitant]
     Active Substance: DENOSUMAB
     Indication: Prophylaxis
     Dates: start: 20161201
  81. SUCRALAN [Concomitant]
     Indication: Prophylaxis
     Dosage: 5 ML, AS NEEDED
     Dates: start: 20161215
  82. ALPRAZOLAM [Concomitant]
     Active Substance: ALPRAZOLAM
     Indication: Product used for unknown indication
     Dosage: 0.5 MG, AS NEEDED
     Dates: start: 20161117
  83. LEVETIRACETAM [Concomitant]
     Active Substance: LEVETIRACETAM
     Indication: Epilepsy
     Dosage: 750 MILLIGRAM, TWICE A DAY
     Dates: start: 20220201
  84. DEXIBUPROFEN [Concomitant]
     Active Substance: DEXIBUPROFEN
     Indication: Pain prophylaxis
     Dosage: 400 MG, TID (LAST DOSE ADMIN: 25/NOV/2023)
     Dates: start: 20210312
  85. TAZOBACTAM [Concomitant]
     Active Substance: TAZOBACTAM
     Indication: Product used for unknown indication
     Dates: start: 20161208, end: 20161212
  86. VIMPAT [Concomitant]
     Active Substance: LACOSAMIDE
     Indication: Product used for unknown indication
     Dosage: UNK
     Route: 065
     Dates: start: 20230602
  87. AMOXICILLIN\CLAVULANATE POTASSIUM [Concomitant]
     Active Substance: AMOXICILLIN\CLAVULANATE POTASSIUM
     Indication: Product used for unknown indication
     Route: 065
  88. HYDROMORPHONE HYDROCHLORIDE [Concomitant]
     Active Substance: HYDROMORPHONE HYDROCHLORIDE
     Indication: Pain prophylaxis
     Dosage: ONGOING = CHECKED
     Route: 065
     Dates: start: 20210410
  89. HYDROMORPHONE HYDROCHLORIDE [Concomitant]
     Active Substance: HYDROMORPHONE HYDROCHLORIDE
     Dosage: 1.3 MILLIGRAM, TWICE A DAY
     Dates: start: 201706, end: 20210309
  90. HYDROMORPHONE HYDROCHLORIDE [Concomitant]
     Active Substance: HYDROMORPHONE HYDROCHLORIDE
     Dates: start: 20190816, end: 20210326
  91. HYDROMORPHONE HYDROCHLORIDE [Concomitant]
     Active Substance: HYDROMORPHONE HYDROCHLORIDE
     Dosage: ONGOING = CHECKED
     Route: 065
     Dates: start: 20210309
  92. HYDROMORPHONE HYDROCHLORIDE [Concomitant]
     Active Substance: HYDROMORPHONE HYDROCHLORIDE
     Dosage: 2 MILLIGRAM, TWICE A DAY
     Dates: start: 20210326, end: 20210409
  93. HYDROMORPHONE HYDROCHLORIDE [Concomitant]
     Active Substance: HYDROMORPHONE HYDROCHLORIDE
     Dosage: 4 MILLIGRAM, TWICE A DAY
     Dates: start: 20210410
  94. PANTOPRAZOLE SODIUM [Concomitant]
     Active Substance: PANTOPRAZOLE SODIUM
     Indication: Product used for unknown indication
     Dates: start: 20161031, end: 20161123
  95. PANTOPRAZOLE SODIUM [Concomitant]
     Active Substance: PANTOPRAZOLE SODIUM
     Dosage: 40 MILLIGRAM, TWICE A DAY
     Dates: start: 20161018, end: 20161030
  96. PANTOPRAZOLE SODIUM [Concomitant]
     Active Substance: PANTOPRAZOLE SODIUM
     Dosage: 40 MILLIGRAM, TWICE A DAY
     Dates: start: 20161010, end: 20161018
  97. ONDANSETRON HYDROCHLORIDE [Concomitant]
     Active Substance: ONDANSETRON HYDROCHLORIDE
     Indication: Nausea
     Dosage: 8 MG, AS NEEDED
     Dates: start: 20181105
  98. ONDANSETRON HYDROCHLORIDE [Concomitant]
     Active Substance: ONDANSETRON HYDROCHLORIDE
     Route: 065
  99. FILGRASTIM [Concomitant]
     Active Substance: FILGRASTIM
     Indication: Product used for unknown indication
     Dosage: 48 IU INTERNATIONAL UNIT(S), ONCE IN A WEEK
     Dates: start: 20161208, end: 20161211
  100. METOCLOPRAMIDE [Concomitant]
     Active Substance: METOCLOPRAMIDE
     Indication: Prophylaxis of nausea and vomiting
     Dosage: 10 MG, ONCE EVERY 3 WK
     Dates: start: 20180205
  101. IMODIUM [Concomitant]
     Active Substance: LOPERAMIDE HYDROCHLORIDE
     Indication: Diarrhoea
     Dates: start: 20171106, end: 20171127
  102. FENTANYL [Concomitant]
     Active Substance: FENTANYL
     Indication: Pain prophylaxis
     Dosage: 25 MICROGRAM, THRICE A DAY
     Dates: start: 201706
  103. SERTRALINE HYDROCHLORIDE [Concomitant]
     Active Substance: SERTRALINE HYDROCHLORIDE
     Indication: Product used for unknown indication
     Dosage: 50 MILLIGRAM
     Dates: start: 201710
  104. LASIX [Concomitant]
     Active Substance: FUROSEMIDE
     Indication: Prophylaxis
     Dates: start: 20161114, end: 201611
  105. LASIX [Concomitant]
     Active Substance: FUROSEMIDE
     Dosage: 30 MG, QD (120 MG)
     Dates: start: 20161112, end: 20161114
  106. APREPITANT [Concomitant]
     Active Substance: APREPITANT
     Indication: Nausea
     Dosage: ONGOING = CHECKED
     Route: 065
     Dates: start: 20221202
  107. APREPITANT [Concomitant]
     Active Substance: APREPITANT
     Dosage: UNK
     Route: 065
     Dates: start: 20221123
  108. CALCIUM CARBONATE\CHOLECALCIFEROL [Concomitant]
     Active Substance: CALCIUM CARBONATE\CHOLECALCIFEROL
     Indication: Prophylaxis
     Dosage: 1 DF TWICE DAILY
     Dates: start: 20161112
  109. CLOBAZAM [Concomitant]
     Active Substance: CLOBAZAM
     Indication: Product used for unknown indication
     Route: 065
  110. TRAZODONE HYDROCHLORIDE [Concomitant]
     Active Substance: TRAZODONE HYDROCHLORIDE
     Indication: Product used for unknown indication
     Dosage: ONGOING = CHECKED
     Route: 065
     Dates: start: 20221129
  111. METOCLOPRAMIDE HYDROCHLORIDE [Concomitant]
     Active Substance: METOCLOPRAMIDE HYDROCHLORIDE
     Indication: Nausea
     Dates: start: 20161113
  112. CEOLAT [DIMETICONE] [Concomitant]
     Indication: Prophylaxis of nausea and vomiting
     Route: 065
     Dates: start: 20161112, end: 201702
  113. LAXAGOL [Concomitant]
     Indication: Product used for unknown indication
     Dosage: ONGOING = CHECKED
     Route: 065
     Dates: start: 20201120
  114. CHLORHEXIDINE GLUCONATE;MACROGOL;SACCHARIN SODIUM;SODIUM BICARBONATE;S [Concomitant]
     Indication: Product used for unknown indication
     Route: 065
  115. LEVOCETIRIZINE [Concomitant]
     Active Substance: LEVOCETIRIZINE
     Indication: Product used for unknown indication
     Dosage: ONGOING = CHECKED
     Route: 065
     Dates: start: 20220801
  116. LOPERAMIDE HYDROCHLORIDE [Concomitant]
     Active Substance: LOPERAMIDE HYDROCHLORIDE
     Indication: Diarrhoea
     Dates: start: 20171127
  117. CERNEVIT [Concomitant]
     Active Substance: VITAMINS
     Indication: Product used for unknown indication
     Route: 065
  118. AMOXICILLIN\CLAVULANATE POTASSIUM [Concomitant]
     Active Substance: AMOXICILLIN\CLAVULANATE POTASSIUM
     Indication: Product used for unknown indication
     Dates: start: 20161212, end: 20161216
  119. DEXAMETHASONE [Concomitant]
     Active Substance: DEXAMETHASONE
     Indication: Headache
     Route: 065
     Dates: start: 20180117, end: 20180122
  120. DEXAMETHASONE [Concomitant]
     Active Substance: DEXAMETHASONE
     Dates: start: 20161202, end: 20161203
  121. DEXAMETHASONE [Concomitant]
     Active Substance: DEXAMETHASONE
     Dosage: UNK MILLIGRAM
     Route: 065
     Dates: start: 20221123, end: 20221215
  122. DEXAMETHASONE [Concomitant]
     Active Substance: DEXAMETHASONE
     Dates: start: 20180817, end: 20180831
  123. DEXAMETHASONE [Concomitant]
     Active Substance: DEXAMETHASONE
     Indication: Prophylaxis
     Dosage: 8 MILLIGRAM, TWICE A DAY
     Dates: start: 20180117, end: 20180122
  124. DEXAMETHASONE [Concomitant]
     Active Substance: DEXAMETHASONE
     Indication: Epilepsy
     Dosage: 8 MILLIGRAM, TWICE A DAY
     Dates: start: 20161202, end: 20161203
  125. DEXAMETHASONE [Concomitant]
     Active Substance: DEXAMETHASONE
     Dates: start: 20220201
  126. GLANDOMED [Concomitant]
     Indication: Product used for unknown indication
     Dosage: AS NEEDED
     Route: 061
     Dates: start: 20161208, end: 20161222
  127. IBUPROFEN [Concomitant]
     Active Substance: IBUPROFEN
     Indication: Product used for unknown indication
     Route: 065
  128. MAGNESIUM CARBONATE\MAGNESIUM OXIDE [Concomitant]
     Active Substance: MAGNESIUM CARBONATE\MAGNESIUM OXIDE
     Indication: Product used for unknown indication
     Route: 065
  129. MYSOLINE [Concomitant]
     Active Substance: PRIMIDONE
     Indication: Product used for unknown indication
     Route: 065
  130. GUAR GUM [Concomitant]
     Active Substance: GUAR GUM
     Indication: Prophylaxis
     Dates: start: 20161102, end: 2016
  131. OSELTAMIVIR [Concomitant]
     Active Substance: OSELTAMIVIR
     Indication: Product used for unknown indication
     Route: 065
  132. ACETAMINOPHEN [Concomitant]
     Active Substance: ACETAMINOPHEN
     Indication: Product used for unknown indication
     Route: 065
  133. FILGRASTIM [Concomitant]
     Active Substance: FILGRASTIM
     Indication: Product used for unknown indication
     Dosage: UNK
     Route: 065
     Dates: start: 20230811, end: 20230924
  134. AMINO ACIDS\DEXTROSE\ELECTROLYTES NOS\SOYBEAN OIL [Concomitant]
     Active Substance: AMINO ACIDS\DEXTROSE\ELECTROLYTES NOS\SOYBEAN OIL
     Indication: Product used for unknown indication
  135. TRACEL [Concomitant]
     Indication: Product used for unknown indication
     Route: 065

REACTIONS (8)
  - Nausea [Recovered/Resolved]
  - Thrombocytopenia [Recovering/Resolving]
  - Hemianopia [Recovered/Resolved]
  - White blood cell count decreased [Not Recovered/Not Resolved]
  - Dehydration [Recovered/Resolved]
  - Abdominal pain [Recovered/Resolved]
  - Headache [Recovered/Resolved]
  - Skin fissures [Recovered/Resolved]

NARRATIVE: CASE EVENT DATE: 20180615
